FAERS Safety Report 17315797 (Version 4)
Quarter: 2021Q1

REPORT INFORMATION
  Report Type: Spontaneous
  Country: US (occurrence: US)
  Receive Date: 20200124
  Receipt Date: 20210128
  Transmission Date: 20210419
  Serious: No
  Sender: FDA-Public Use
  Company Number: US-PFIZER INC-2020031042

PATIENT
  Age: 64 Year
  Sex: Male

DRUGS (2)
  1. METHOTREXATE. [Concomitant]
     Active Substance: METHOTREXATE
     Dosage: UNK
  2. XELJANZ XR [Suspect]
     Active Substance: TOFACITINIB CITRATE
     Indication: PSORIATIC ARTHROPATHY
     Dosage: 11 MG, 1X/DAY
     Route: 048
     Dates: start: 20191201

REACTIONS (5)
  - Product dose omission issue [Unknown]
  - Influenza like illness [Recovered/Resolved]
  - Rhinorrhoea [Unknown]
  - Therapeutic product effect incomplete [Unknown]
  - Upper respiratory tract infection [Recovered/Resolved]
